FAERS Safety Report 10049586 (Version 1)
Quarter: 2014Q1

REPORT INFORMATION
  Report Type: Spontaneous
  Country: GB (occurrence: None)
  Receive Date: 20140328
  Receipt Date: 20140328
  Transmission Date: 20141002
  Serious: Yes (Hospitalization)
  Sender: FDA-Public Use
  Company Number: 2014AP002282

PATIENT
  Age: 39 Year
  Sex: Female

DRUGS (5)
  1. AMISULPRIDE [Suspect]
     Indication: SCHIZOPHRENIA
     Dosage: 50 MG; UNKNOWN; PO; UNKNOWN
     Route: 048
  2. METFORMIN (METFORMIN) [Suspect]
     Indication: DIABETES MELLITUS
     Dosage: 1500 MG; UNKNOWN; PO; UNKNOWN
     Route: 048
  3. CLOZARIL [Suspect]
     Indication: SCHIZOPHRENIA
     Dosage: 325 MG; UNKNOWN; PO; UNKNOWN
     Route: 048
     Dates: end: 20041129
  4. LAMOTRIGINE (LAMOTRIGINE) [Suspect]
     Indication: EPILEPSY
     Dosage: 475 MG; UNKNOWN, PO; UNKNOWN
     Route: 048
  5. SIMVASTATIN (SIMVASTATIN) [Suspect]
     Indication: HYPERCHOLESTEROLAEMIA
     Dosage: 20 MG; UNKNOWN; PO; UNKNOWN
     Route: 048

REACTIONS (3)
  - Aggression [None]
  - Antipsychotic drug level decreased [None]
  - Schizophrenia [None]
